FAERS Safety Report 4852080-7 (Version None)
Quarter: 2005Q4

REPORT INFORMATION
  Report Type: 
  Country: None (occurrence: None)
  Receive Date: 20051209
  Receipt Date: 20051129
  Transmission Date: 20060501
  Serious: Yes (Death)
  Sender: FDA-Public Use
  Company Number: MK200512-0056-1

PATIENT
  Age: 40 Year
  Sex: Female
  Weight: 80.2867 kg

DRUGS (8)
  1. OXYCODONE AND ACETAMINOPHEN [Suspect]
     Indication: HEADACHE
     Dosage: 1 TAB BID PRN PO
     Route: 048
     Dates: end: 20040218
  2. ADVAIR DISKUS 100/50 [Concomitant]
  3. ALLEGRA [Concomitant]
  4. PROMETHAZINE [Concomitant]
  5. CONCERTA [Concomitant]
  6. PREDNISONE TAB [Concomitant]
  7. DOXEPIN HCL [Concomitant]
  8. DIAZEPAM [Concomitant]

REACTIONS (5)
  - ACCIDENTAL DEATH [None]
  - ARTERIOSCLEROSIS CORONARY ARTERY [None]
  - DRUG LEVEL INCREASED [None]
  - DRUG TOXICITY [None]
  - PULMONARY OEDEMA [None]
